FAERS Safety Report 6032151-2 (Version None)
Quarter: 2009Q1

REPORT INFORMATION
  Report Type: 
  Country: None (occurrence: None)
  Receive Date: 20090107
  Receipt Date: 20081223
  Transmission Date: 20090719
  Serious: Yes (Death, Hospitalization)
  Sender: FDA-Public Use
  Company Number: 2008003339

PATIENT
  Age: 61 Year
  Sex: Male

DRUGS (3)
  1. TARCEVA [Suspect]
     Indication: LUNG ADENOCARCINOMA METASTATIC
     Dosage: 150 MG, ORAL
     Route: 048
     Dates: start: 20080827, end: 20081030
  2. ZOLEDRONIC ACID [Concomitant]
  3. GLYBURIDE [Concomitant]

REACTIONS (2)
  - HAEMOLYTIC ANAEMIA [None]
  - PNEUMONIA PRIMARY ATYPICAL [None]
